FAERS Safety Report 9100964 (Version 14)
Quarter: 2014Q4

REPORT INFORMATION
  Report Type: Report from Study
  Country: CA (occurrence: CA)
  Receive Date: 20130215
  Receipt Date: 20141121
  Transmission Date: 20150529
  Serious: Yes (Other)
  Sender: FDA-Public Use
  Company Number: PHHY2013CA003912

PATIENT
  Age: 58 Year
  Sex: Male

DRUGS (4)
  1. SLEEPING//TRIAZOLAM [Concomitant]
     Indication: PRODUCT USED FOR UNKNOWN INDICATION
     Route: 065
  2. TASIGNA [Suspect]
     Active Substance: NILOTINIB
     Indication: CHRONIC MYELOID LEUKAEMIA
     Dosage: 300 MG, BID
     Route: 048
     Dates: start: 20121223
  3. ALTACE [Concomitant]
     Active Substance: RAMIPRIL
     Indication: PRODUCT USED FOR UNKNOWN INDICATION
     Dosage: 10 MG, QD
     Route: 048
     Dates: start: 20130311
  4. ALTACE [Concomitant]
     Active Substance: RAMIPRIL
     Dosage: 10 MG
     Route: 048

REACTIONS (45)
  - Skin tightness [Recovered/Resolved]
  - Lip swelling [Unknown]
  - Sinusitis [Unknown]
  - Pain [Recovering/Resolving]
  - Chest discomfort [Recovered/Resolved]
  - Headache [Unknown]
  - Pharyngitis [Unknown]
  - Musculoskeletal stiffness [Not Recovered/Not Resolved]
  - Arthritis [Unknown]
  - Ligament sprain [Recovering/Resolving]
  - Pain in jaw [Unknown]
  - Insomnia [Unknown]
  - Pain of skin [Not Recovered/Not Resolved]
  - Skeletal injury [Unknown]
  - Facial pain [Unknown]
  - Abdominal pain upper [Recovering/Resolving]
  - Ligament rupture [Unknown]
  - Muscle spasms [Recovering/Resolving]
  - Cyst [Not Recovered/Not Resolved]
  - Scab [Recovered/Resolved]
  - Swollen tongue [Unknown]
  - Weight decreased [Unknown]
  - Blood pressure increased [Recovered/Resolved]
  - Pain in extremity [Not Recovered/Not Resolved]
  - Gastroenteritis viral [Recovering/Resolving]
  - Skin exfoliation [Unknown]
  - Rash [Recovering/Resolving]
  - Muscle rupture [Unknown]
  - Mobility decreased [Recovering/Resolving]
  - Incorrect drug administration duration [Unknown]
  - Rhinalgia [Unknown]
  - Dry mouth [Unknown]
  - Fatigue [Unknown]
  - Psoriasis [Unknown]
  - Eczema [Unknown]
  - Meniscus injury [Unknown]
  - Speech disorder [Unknown]
  - Paraesthesia [Unknown]
  - Limb injury [Unknown]
  - Urticaria [Recovered/Resolved]
  - Pruritus [Recovered/Resolved]
  - Food interaction [Unknown]
  - Alopecia [Recovered/Resolved]
  - Abdominal pain [Unknown]
  - Vision blurred [Unknown]

NARRATIVE: CASE EVENT DATE: 20121223
